FAERS Safety Report 16974704 (Version 1)
Quarter: 2019Q4

REPORT INFORMATION
  Report Type: Spontaneous
  Country: US (occurrence: US)
  Receive Date: 20191030
  Receipt Date: 20191030
  Transmission Date: 20200122
  Serious: Yes (Other)
  Sender: FDA-Public Use
  Company Number: US-HIKMA PHARMACEUTICALS USA INC.-US-H14001-19-05453

PATIENT

DRUGS (4)
  1. HUMIRA [Suspect]
     Active Substance: ADALIMUMAB
     Indication: PRODUCT USED FOR UNKNOWN INDICATION
     Route: 065
  2. PREDNISONE. [Suspect]
     Active Substance: PREDNISONE
     Indication: PRODUCT USED FOR UNKNOWN INDICATION
     Route: 065
  3. MERCAPTOPURINE. [Suspect]
     Active Substance: MERCAPTOPURINE
     Indication: PRODUCT USED FOR UNKNOWN INDICATION
     Route: 065
  4. PREDNISONE. [Suspect]
     Active Substance: PREDNISONE
     Route: 065

REACTIONS (12)
  - Sinusitis [Unknown]
  - Lethargy [Unknown]
  - Weight decreased [Unknown]
  - Alopecia [Unknown]
  - Tremor [Unknown]
  - Therapeutic product effect decreased [Unknown]
  - Asthenia [Unknown]
  - Nasopharyngitis [Unknown]
  - Frequent bowel movements [Unknown]
  - Blepharospasm [Unknown]
  - Haematochezia [Unknown]
  - Fatigue [Unknown]
